FAERS Safety Report 11030464 (Version 1)
Quarter: 2015Q2

REPORT INFORMATION
  Report Type: Spontaneous
  Country: US (occurrence: None)
  Receive Date: 20150413
  Receipt Date: 20150413
  Transmission Date: 20150821
  Serious: Yes (Hospitalization)
  Sender: FDA-Public Use
  Company Number: US-H14001-15-00522

PATIENT
  Age: 53 Year
  Sex: Female

DRUGS (2)
  1. LEVOFLOXACIN. [Suspect]
     Active Substance: LEVOFLOXACIN
     Indication: CELLULITIS
  2. CEFUROXIME. [Concomitant]
     Active Substance: CEFUROXIME

REACTIONS (5)
  - Purulence [None]
  - Abscess [None]
  - Haematoma infection [None]
  - Clostridium test positive [None]
  - Tendon rupture [None]

NARRATIVE: CASE EVENT DATE: 2008
